FAERS Safety Report 8834846 (Version 4)
Quarter: 2012Q4

REPORT INFORMATION
  Report Type: 
  Country: DE (occurrence: DE)
  Receive Date: 20121010
  Receipt Date: 20121108
  Transmission Date: 20130627
  Serious: Yes (Death)
  Sender: FDA-Public Use
  Company Number: DE-GLAXOSMITHKLINE-D0077321A

PATIENT
  Age: 49 Year
  Sex: Male
  Weight: 70 kg

DRUGS (4)
  1. TROBALT [Suspect]
     Indication: EPILEPSY
     Dosage: 50MG Three times per day
     Route: 048
     Dates: start: 20111101
  2. LEVETIRACETAM [Concomitant]
     Indication: EPILEPSY
     Dosage: 1500MG Twice per day
     Route: 048
  3. TOPAMAX [Concomitant]
     Indication: EPILEPSY
     Dosage: 100MG Twice per day
     Route: 048
  4. VIMPAT [Concomitant]
     Indication: EPILEPSY
     Dosage: 200MG Twice per day
     Route: 048

REACTIONS (2)
  - Death [Fatal]
  - Sudden unexplained death in epilepsy [Fatal]
